FAERS Safety Report 6469654-2 (Version None)
Quarter: 2009Q4

REPORT INFORMATION
  Report Type: 
  Country: None (occurrence: None)
  Receive Date: 20091203
  Receipt Date: 20071024
  Transmission Date: 20100525
  Serious: Yes (Death, Other)
  Sender: FDA-Public Use
  Company Number: HU-ELI_LILLY_AND_COMPANY-HU200710006096

PATIENT
  Age: 62 Year
  Sex: Male
  Weight: 130 kg

DRUGS (7)
  1. DROTRECOGIN ALFA (ACTIVATED) [Suspect]
     Indication: SEPTIC SHOCK
     Dosage: 20 MG, OTHER
     Route: 042
     Dates: start: 20070920, end: 20070924
  2. POTASSIUM [Concomitant]
     Dosage: UNK, UNKNOWN
     Route: 065
  3. FUROSEMID [Concomitant]
     Dosage: UNK, UNKNOWN
     Route: 065
  4. SORTIS [Concomitant]
     Dosage: UNK, UNKNOWN
     Route: 065
  5. ASPIRIN [Concomitant]
     Dosage: UNK, UNKNOWN
     Route: 065
  6. DIOVAN [Concomitant]
     Dosage: UNK, UNKNOWN
     Route: 065
  7. NEBILET [Concomitant]
     Dosage: UNK, UNKNOWN
     Route: 065

REACTIONS (2)
  - CARDIO-RESPIRATORY DISTRESS [None]
  - HAEMORRHAGE [None]
